FAERS Safety Report 13168887 (Version 1)
Quarter: 2017Q1

REPORT INFORMATION
  Report Type: Spontaneous
  Country: US (occurrence: IL)
  Receive Date: 20170131
  Receipt Date: 20170131
  Transmission Date: 20170428
  Serious: Yes (Other)
  Sender: FDA-Public Use
  Company Number: IL-STI PHARMA LLC-1062580

PATIENT
  Age: 57 Year
  Sex: Female
  Weight: 78.18 kg

DRUGS (1)
  1. ETHAMBUTOL HYDROCHLORIDE. [Suspect]
     Active Substance: ETHAMBUTOL HYDROCHLORIDE

REACTIONS (2)
  - Arthralgia [None]
  - Gout [None]
